FAERS Safety Report 12657475 (Version 1)
Quarter: 2016Q3

REPORT INFORMATION
  Report Type: Spontaneous
  Country: US (occurrence: US)
  Receive Date: 20160816
  Receipt Date: 20160816
  Transmission Date: 20161109
  Serious: No
  Sender: FDA-Public Use
  Company Number: US-ENDO PHARMACEUTICALS INC.-2015-003687

PATIENT
  Age: 63 Year
  Sex: Male
  Weight: 93.07 kg

DRUGS (5)
  1. SUMATRIPTAN. [Concomitant]
     Active Substance: SUMATRIPTAN
     Indication: CLUSTER HEADACHE
  2. GABAPENTIN. [Concomitant]
     Active Substance: GABAPENTIN
     Indication: CLUSTER HEADACHE
  3. SUMAVEL DOSEPRO [Suspect]
     Active Substance: SUMATRIPTAN SUCCINATE
     Dosage: TWO NEEDLE-FREE INJECTIONS INTO THIGH AS NEEDED
     Route: 065
     Dates: start: 201508
  4. LITHIUM. [Concomitant]
     Active Substance: LITHIUM
     Indication: CLUSTER HEADACHE
  5. SUMAVEL DOSEPRO [Suspect]
     Active Substance: SUMATRIPTAN SUCCINATE
     Indication: CLUSTER HEADACHE
     Dosage: ONE 4MG DOSE INJECTED SUBCUTANEOUSLY AT ONSET OF CLUSTER HEADACHE, MAY REPEAT ONCE.
     Route: 058
     Dates: start: 2012

REACTIONS (4)
  - Device malfunction [Recovered/Resolved]
  - Accidental exposure to product [Recovered/Resolved]
  - Incorrect dose administered by device [None]
  - Expired device used [None]

NARRATIVE: CASE EVENT DATE: 2015
